FAERS Safety Report 26176276 (Version 1)
Quarter: 2025Q4

REPORT INFORMATION
  Report Type: Spontaneous
  Country: US (occurrence: None)
  Receive Date: 20251218
  Receipt Date: 20251218
  Transmission Date: 20260117
  Serious: No
  Sender: FDA-CTU
  Company Number: None

PATIENT
  Age: 65 Year
  Sex: Female
  Weight: 88 kg

DRUGS (1)
  1. DEFINITY [Suspect]
     Active Substance: PERFLUTREN
     Dosage: FREQUENCY : AS NEEDED;
     Route: 042

REACTIONS (2)
  - Flank pain [None]
  - Contrast media reaction [None]

NARRATIVE: CASE EVENT DATE: 20251218
